FAERS Safety Report 22340127 (Version 1)
Quarter: 2023Q2

REPORT INFORMATION
  Report Type: Report from Study
  Country: US (occurrence: US)
  Receive Date: 20230518
  Receipt Date: 20230518
  Transmission Date: 20230722
  Serious: Yes (Other)
  Sender: FDA-Public Use
  Company Number: US-JAZZ-2018-US-012638

PATIENT
  Sex: Female

DRUGS (11)
  1. XYREM [Suspect]
     Active Substance: SODIUM OXYBATE
     Indication: Narcolepsy
     Dosage: 3 G, BID
     Route: 048
     Dates: start: 201308
  2. XYREM [Suspect]
     Active Substance: SODIUM OXYBATE
     Indication: Cataplexy
  3. XYREM [Suspect]
     Active Substance: SODIUM OXYBATE
     Indication: Somnolence
  4. AMOXICILLIN [Concomitant]
     Active Substance: AMOXICILLIN
  5. NUVIGIL [Concomitant]
     Active Substance: ARMODAFINIL
  6. SINGULAIR [Concomitant]
     Active Substance: MONTELUKAST SODIUM
  7. XYZAL [Concomitant]
     Active Substance: LEVOCETIRIZINE DIHYDROCHLORIDE
  8. CAMRESE [Concomitant]
     Active Substance: ETHINYL ESTRADIOL\LEVONORGESTREL
  9. NALTREXONE [Concomitant]
     Active Substance: NALTREXONE
  10. PATADAY [Concomitant]
     Active Substance: OLOPATADINE HYDROCHLORIDE
  11. HYDROCHLOROTHIAZIDE\TRIAMTERENE [Concomitant]
     Active Substance: HYDROCHLOROTHIAZIDE\TRIAMTERENE

REACTIONS (2)
  - Hypothyroidism [Unknown]
  - Lymphadenopathy [Unknown]
